FAERS Safety Report 23436323 (Version 1)
Quarter: 2024Q1

REPORT INFORMATION
  Report Type: Spontaneous
  Country: US (occurrence: US)
  Receive Date: 20240124
  Receipt Date: 20240124
  Transmission Date: 20240410
  Serious: No
  Sender: FDA-Public Use
  Company Number: US-ELI_LILLY_AND_COMPANY-US202401011363

PATIENT
  Age: 44 Year
  Sex: Male

DRUGS (5)
  1. LYUMJEV [Suspect]
     Active Substance: INSULIN LISPRO-AABC
     Indication: Diabetes mellitus
     Dosage: UNK UNK, UNKNOWN
     Route: 065
     Dates: start: 2023
  2. RAMIPRIL [Concomitant]
     Active Substance: RAMIPRIL
     Indication: Myocardial infarction
     Dosage: UNK UNK, UNKNOWN
     Route: 065
  3. RAMIPRIL [Concomitant]
     Active Substance: RAMIPRIL
     Indication: Cerebrovascular accident
  4. LIPITOR [Concomitant]
     Active Substance: ATORVASTATIN CALCIUM
     Indication: Myocardial infarction
     Dosage: UNK UNK, UNKNOWN
     Route: 065
  5. LIPITOR [Concomitant]
     Active Substance: ATORVASTATIN CALCIUM
     Indication: Cerebrovascular accident

REACTIONS (2)
  - Infusion site erythema [Recovered/Resolved]
  - Infusion site rash [Recovered/Resolved]

NARRATIVE: CASE EVENT DATE: 20230801
